FAERS Safety Report 8451882-8 (Version None)
Quarter: 2012Q2

REPORT INFORMATION
  Report Type: 
  Country: None (occurrence: None)
  Receive Date: 20120620
  Receipt Date: 20120322
  Transmission Date: 20120825
  Serious: No
  Sender: FDA-Public Use
  Company Number: US-VERTEX PHARMACEUTICALS INC.-AE-2012-004178

PATIENT
  Sex: Male
  Weight: 56.7 kg

DRUGS (4)
  1. PROMACTA [Concomitant]
  2. RIBASPHERE [Concomitant]
     Indication: HEPATITIS C
     Dates: start: 20111213, end: 20120215
  3. INCIVEK [Suspect]
     Indication: HEPATITIS C
     Route: 048
     Dates: start: 20111213, end: 20120215
  4. PEGASYS [Concomitant]
     Indication: HEPATITIS C
     Route: 058
     Dates: start: 20111213, end: 20120215

REACTIONS (2)
  - PRURITUS [None]
  - RASH [None]
